FAERS Safety Report 7766167-2 (Version None)
Quarter: 2011Q3

REPORT INFORMATION
  Report Type: 
  Country: None (occurrence: None)
  Receive Date: 20110921
  Receipt Date: 20110913
  Transmission Date: 20111222
  Serious: Yes (Hospitalization)
  Sender: FDA-Public Use
  Company Number: DK-GENENTECH-324411

PATIENT
  Sex: Male

DRUGS (13)
  1. MABTHERA [Suspect]
     Indication: B-CELL LYMPHOMA RECURRENT
     Dosage: UNK
     Route: 065
     Dates: start: 20050110
  2. PREDNISONE [Suspect]
     Indication: B-CELL LYMPHOMA RECURRENT
     Dosage: UNK
     Route: 065
     Dates: start: 20060901
  3. CYCLOPHOSPHAMIDE [Suspect]
     Dosage: UNK
     Route: 065
     Dates: start: 20060901
  4. VINCRISTINE [Suspect]
     Indication: B-CELL LYMPHOMA RECURRENT
     Dosage: UNK
     Route: 065
     Dates: start: 20060901
  5. MABTHERA [Suspect]
     Dosage: UNK
     Route: 065
     Dates: start: 20060901
  6. MABTHERA [Suspect]
     Dosage: UNK
     Route: 065
     Dates: start: 20080115
  7. CYCLOPHOSPHAMIDE [Suspect]
     Indication: B-CELL LYMPHOMA RECURRENT
     Dosage: UNK
     Route: 065
     Dates: start: 20050110
  8. MABTHERA [Suspect]
     Dosage: UNK
     Route: 065
     Dates: start: 20060215
  9. ZEVALIN [Suspect]
     Indication: B-CELL LYMPHOMA RECURRENT
     Dosage: UNK
     Route: 065
     Dates: start: 20060215
  10. ZEVALIN [Suspect]
     Dosage: UNK
     Route: 065
     Dates: start: 20060901, end: 20060901
  11. DOXORUBICIN HCL [Suspect]
     Indication: B-CELL LYMPHOMA RECURRENT
     Dosage: UNK
     Route: 065
     Dates: start: 20060901
  12. YTTRIUM-90 [Suspect]
     Indication: B-CELL LYMPHOMA RECURRENT
     Dosage: UNK
     Route: 065
     Dates: start: 20060901, end: 20060901
  13. PREDNISONE [Suspect]
     Dosage: UNK
     Route: 065
     Dates: start: 20080115

REACTIONS (1)
  - MYELODYSPLASTIC SYNDROME [None]
